FAERS Safety Report 23854608 (Version 1)
Quarter: 2024Q2

REPORT INFORMATION
  Report Type: Spontaneous
  Country: US (occurrence: US)
  Receive Date: 20240514
  Receipt Date: 20240514
  Transmission Date: 20240716
  Serious: Yes (Other)
  Sender: FDA-Public Use
  Company Number: US-ALNYLAM PHARMACEUTICALS, INC.-ALN-2024-002671

PATIENT

DRUGS (13)
  1. OXLUMO [Suspect]
     Active Substance: LUMASIRAN
     Indication: Primary hyperoxaluria
     Dosage: UNK, EVERY 3 MONTHS (Q3M)
     Route: 058
     Dates: start: 20210514, end: 20210514
  2. TACROLIMUS [Concomitant]
     Active Substance: TACROLIMUS
     Indication: Prophylaxis against transplant rejection
     Dosage: UNK, BID
     Route: 065
  3. CELLCEPT [Concomitant]
     Active Substance: MYCOPHENOLATE MOFETIL
     Indication: Prophylaxis against transplant rejection
     Dosage: UNK, BID
     Route: 065
  4. PREDNISONE [Concomitant]
     Active Substance: PREDNISONE
     Indication: Product used for unknown indication
     Route: 065
  5. ACYCLOVIR [Concomitant]
     Active Substance: ACYCLOVIR
     Indication: Viral infection
     Dosage: UNTIL 01-JUL-2024
     Route: 065
  6. NYSTATIN [Concomitant]
     Active Substance: NYSTATIN
     Indication: Product used for unknown indication
     Dosage: UNK, TID
     Route: 048
  7. DAPSONE [Concomitant]
     Active Substance: DAPSONE
     Indication: Infection
     Dosage: UNTIL OCT 1 A DAY, QD
     Route: 065
  8. VITAMIN B6 [Concomitant]
     Active Substance: PYRIDOXINE HYDROCHLORIDE
     Indication: Product used for unknown indication
     Dosage: UNK, BID
     Route: 065
  9. MAGNESIUM OXIDE [Concomitant]
     Active Substance: MAGNESIUM OXIDE
     Indication: Product used for unknown indication
     Dosage: UNK, TID
     Route: 065
  10. PEPCID [Concomitant]
     Active Substance: FAMOTIDINE
     Indication: Dyspepsia
     Dosage: ONE IN THE MORNING, QD
     Route: 065
  11. ZOSYN [Concomitant]
     Active Substance: PIPERACILLIN SODIUM\TAZOBACTAM SODIUM
     Indication: Bacterial infection
     Dosage: 200 MILLIGRAM
     Route: 065
  12. ZOFRAN [Concomitant]
     Active Substance: ONDANSETRON HYDROCHLORIDE
     Indication: Vomiting
     Dosage: UNK, PRN
     Route: 065
  13. CARVEDILOL [Concomitant]
     Active Substance: CARVEDILOL
     Indication: Blood pressure management
     Route: 065

REACTIONS (1)
  - Renal transplant [Unknown]

NARRATIVE: CASE EVENT DATE: 20240331
